FAERS Safety Report 5468411-3 (Version None)
Quarter: 2007Q3

REPORT INFORMATION
  Report Type: 
  Country: None (occurrence: None)
  Receive Date: 20070921
  Receipt Date: 20070903
  Transmission Date: 20080115
  Serious: Yes (Hospitalization)
  Sender: FDA-Public Use
  Company Number: 6037646

PATIENT
  Age: 23 Year
  Sex: Male

DRUGS (2)
  1. CISPLATIN [Suspect]
     Indication: METASTASIS
     Dosage: PER DAY (20 MG/M2, 5 DAYS EVERY 3 WEEKS)
  2. ETOPOSIDE [Suspect]
     Indication: METASTASIS
     Dosage: PER DAY (50 MG/M2. 5 DAYS EVERY 3 WEEKS)

REACTIONS (8)
  - AZOTAEMIA [None]
  - DYSPNOEA [None]
  - FATIGUE [None]
  - FLUID OVERLOAD [None]
  - HAEMODIALYSIS [None]
  - HAEMODILUTION [None]
  - RENAL FAILURE [None]
  - TUMOUR LYSIS SYNDROME [None]
